FAERS Safety Report 4850691-6 (Version None)
Quarter: 2005Q4

REPORT INFORMATION
  Report Type: 
  Country: None (occurrence: None)
  Receive Date: 20051208
  Receipt Date: 20051208
  Transmission Date: 20060501
  Serious: Yes (Other)
  Sender: FDA-Public Use
  Company Number: None

PATIENT
  Sex: Female
  Weight: 66.6788 kg

DRUGS (1)
  1. PROTOPIC [Suspect]
     Indication: BLEPHARITIS
     Dosage: DAB ON EYELIDS TWICE A DAY TOP
     Route: 061
     Dates: start: 20011101, end: 20050730

REACTIONS (14)
  - EPISCLERITIS [None]
  - EYE INFECTION VIRAL [None]
  - FUNGAL INFECTION [None]
  - IMMUNE SYSTEM DISORDER [None]
  - LICHEN PLANUS [None]
  - MALAISE [None]
  - MENOPAUSAL SYMPTOMS [None]
  - ORAL CANDIDIASIS [None]
  - ORAL HAIRY LEUKOPLAKIA [None]
  - POOR QUALITY DRUG ADMINISTERED [None]
  - SCLERITIS [None]
  - SINUSITIS [None]
  - TOOTH ABSCESS [None]
  - VAGINITIS BACTERIAL [None]
